FAERS Safety Report 13299583 (Version 1)
Quarter: 2017Q1

REPORT INFORMATION
  Report Type: Spontaneous
  Country: GB (occurrence: GB)
  Receive Date: 20170306
  Receipt Date: 20170306
  Transmission Date: 20170428
  Serious: Yes (Hospitalization)
  Sender: FDA-Public Use
  Company Number: GB-TEVA-743801ACC

PATIENT
  Sex: Female

DRUGS (3)
  1. VENLAFAXINE [Suspect]
     Active Substance: VENLAFAXINE HYDROCHLORIDE
     Route: 065
  2. VENLAFAXINE [Suspect]
     Active Substance: VENLAFAXINE HYDROCHLORIDE
     Route: 065
  3. MIRTAZAPINE. [Concomitant]
     Active Substance: MIRTAZAPINE
     Route: 048

REACTIONS (9)
  - Blindness [Recovered/Resolved]
  - Insomnia [Recovered/Resolved]
  - Muscle tightness [Recovered/Resolved]
  - Migraine [Recovered/Resolved]
  - Irritable bowel syndrome [Recovered/Resolved]
  - Gluten sensitivity [Unknown]
  - Wrong drug administered [Unknown]
  - Anxiety [Recovered/Resolved]
  - Nightmare [Recovered/Resolved]
